FAERS Safety Report 5051066-X (Version None)
Quarter: 2006Q3

REPORT INFORMATION
  Report Type: 
  Country: None (occurrence: None)
  Receive Date: 20060714
  Receipt Date: 20060710
  Transmission Date: 20061208
  Serious: Yes (Hospitalization)
  Sender: FDA-Public Use
  Company Number: PHRM2006FR02017

PATIENT
  Age: 71 Year
  Sex: Male

DRUGS (1)
  1. TEGRETOL [Suspect]
     Indication: FACIAL NEURALGIA
     Route: 048
     Dates: start: 20041102, end: 20050401

REACTIONS (14)
  - ASTHENIA [None]
  - BACTERIA URINE [None]
  - BETA 2 MICROGLOBULIN INCREASED [None]
  - DYSAESTHESIA [None]
  - GENERAL PHYSICAL HEALTH DETERIORATION [None]
  - GRANULOCYTE COUNT INCREASED [None]
  - INFLAMMATION [None]
  - LEUKOCYTOSIS [None]
  - NIGHT SWEATS [None]
  - PYELONEPHRITIS [None]
  - PYREXIA [None]
  - RED BLOOD CELL SEDIMENTATION RATE INCREASED [None]
  - SERUM FERRITIN INCREASED [None]
  - WEIGHT DECREASED [None]
